FAERS Safety Report 4339658-4 (Version None)
Quarter: 2004Q1

REPORT INFORMATION
  Report Type: 
  Country: None (occurrence: None)
  Receive Date: 20040329
  Receipt Date: 20031230
  Transmission Date: 20041129
  Serious: No
  Sender: FDA-Public Use
  Company Number: 04P-163-0246280-00

PATIENT
  Age: 74 Year
  Sex: Male
  Weight: 79.3795 kg

DRUGS (12)
  1. HUMIRA [Suspect]
     Indication: RHEUMATOID ARTHRITIS
     Dosage: 40 MG, 1 IN 2 WK, SUBCUTANEOUS
     Route: 058
     Dates: start: 20031001
  2. FOLIC ACID [Concomitant]
  3. MULTI-VITAMINS [Concomitant]
  4. CALCIUM [Concomitant]
  5. METHOTREXATE [Concomitant]
  6. HYDROXYCHLOROQUINE PHOSPHATE [Concomitant]
  7. VENLAFAXINE HCL [Concomitant]
  8. CALCITONIN-SALMON [Concomitant]
  9. FINASTERIDE [Concomitant]
  10. OMEPRAZOLE [Concomitant]
  11. QUINAPRIL HYDROCHLORIDE [Concomitant]
  12. AMLODIPINE BESYLATE [Concomitant]

REACTIONS (4)
  - ARTHRALGIA [None]
  - ASTHENIA [None]
  - MALAISE [None]
  - SINUS CONGESTION [None]
